FAERS Safety Report 7962406-3 (Version None)
Quarter: 2011Q4

REPORT INFORMATION
  Report Type: 
  Country: None (occurrence: None)
  Receive Date: 20111121
  Receipt Date: 20110919
  Transmission Date: 20120403
  Serious: No
  Sender: FDA-Public Use
  Company Number: 1000023988

PATIENT
  Sex: Female

DRUGS (5)
  1. VIIBRYD [Suspect]
     Indication: DEPRESSION
     Dosage: 10;20;40  MG (10;20;40 MG, 1 IN 1 D), ORAL
     Route: 048
     Dates: start: 20110101
  2. VIIBRYD [Suspect]
     Indication: ANXIETY
     Dosage: 10;20;40  MG (10;20;40 MG, 1 IN 1 D), ORAL
     Route: 048
     Dates: start: 20110101
  3. VIIBRYD [Suspect]
     Indication: DEPRESSION
     Dosage: 10;20;40  MG (10;20;40 MG, 1 IN 1 D), ORAL
     Route: 048
     Dates: start: 20110101, end: 20110101
  4. VIIBRYD [Suspect]
     Indication: ANXIETY
     Dosage: 10;20;40  MG (10;20;40 MG, 1 IN 1 D), ORAL
     Route: 048
     Dates: start: 20110101, end: 20110101
  5. XANAX [Concomitant]

REACTIONS (1)
  - ALOPECIA [None]
